FAERS Safety Report 8950838 (Version 1)
Quarter: 2012Q4

REPORT INFORMATION
  Report Type: Spontaneous
  Country: US (occurrence: None)
  Receive Date: 20121204
  Receipt Date: 20121204
  Transmission Date: 20130627
  Serious: No
  Sender: FDA-Public Use
  Company Number: None

PATIENT
  Age: 32 Year
  Sex: Male
  Weight: 83.92 kg

DRUGS (1)
  1. SULFASALZINE [Suspect]
     Indication: CROHN^S
     Dosage: 4 tablets  3 x daily   po
     Route: 048
     Dates: start: 20121015, end: 20121126

REACTIONS (12)
  - Mental disorder [None]
  - Vision blurred [None]
  - Headache [None]
  - Fatigue [None]
  - Asthenia [None]
  - Poor quality sleep [None]
  - Depression [None]
  - Mood altered [None]
  - Hypertension [None]
  - Pulse pressure increased [None]
  - Tremor [None]
  - Thought blocking [None]
